FAERS Safety Report 9406485 (Version 1)
Quarter: 2013Q3

REPORT INFORMATION
  Report Type: Spontaneous
  Country: FR (occurrence: FR)
  Receive Date: 20130718
  Receipt Date: 20130718
  Transmission Date: 20140515
  Serious: Yes (Hospitalization)
  Sender: FDA-Public Use
  Company Number: FR-ROCHE-1249422

PATIENT
  Age: 53 Year
  Sex: Male

DRUGS (16)
  1. APRANAX [Suspect]
     Indication: RHEUMATOID ARTHRITIS
     Dosage: 550 MG
     Route: 048
     Dates: start: 2012, end: 201305
  2. ENBREL [Suspect]
     Indication: RHEUMATOID ARTHRITIS
     Route: 058
     Dates: start: 2010, end: 201305
  3. NOVATREX [Suspect]
     Indication: RHEUMATOID ARTHRITIS
     Dosage: 2.5 MG
     Route: 048
     Dates: start: 2010, end: 201305
  4. FELDENE [Suspect]
     Indication: ARTHRALGIA
     Dosage: FELDENE DISPERSIBLE
     Route: 048
     Dates: start: 20130517, end: 20130520
  5. PROFENID [Suspect]
     Indication: PRODUCT USED FOR UNKNOWN INDICATION
     Route: 042
     Dates: start: 20130521, end: 20130521
  6. PROFENID [Suspect]
     Route: 042
     Dates: start: 20130522, end: 20130522
  7. KETOPROFENE [Suspect]
     Indication: PRODUCT USED FOR UNKNOWN INDICATION
     Route: 061
     Dates: start: 20130517, end: 20130520
  8. MIOREL (FRANCE) [Concomitant]
     Route: 065
     Dates: start: 20130517
  9. KETUM [Concomitant]
     Route: 065
     Dates: start: 20130517
  10. IXPRIM [Concomitant]
     Route: 065
     Dates: start: 20130517
  11. OGASTORO [Concomitant]
     Route: 065
     Dates: start: 20130517
  12. OGASTORO [Concomitant]
     Route: 065
     Dates: start: 201205
  13. SPECIAFOLDINE [Concomitant]
     Route: 065
     Dates: start: 2010
  14. TAHOR [Concomitant]
     Route: 065
     Dates: start: 2012
  15. LEXOMIL [Concomitant]
     Route: 065
     Dates: start: 2012
  16. VOLTARENE (FRANCE) [Concomitant]
     Route: 065
     Dates: start: 2012

REACTIONS (1)
  - Dermo-hypodermitis [Recovered/Resolved]
